FAERS Safety Report 9045975 (Version 2)
Quarter: 2013Q3

REPORT INFORMATION
  Report Type: Report from Study
  Country: JP (occurrence: JP)
  Receive Date: 20130201
  Receipt Date: 20130826
  Transmission Date: 20140515
  Serious: Yes (Death, Life-Threatening, Hospitalization)
  Sender: FDA-Public Use
  Company Number: JP-MERCK-1301JPN013565

PATIENT
  Age: 85 Year
  Sex: Female
  Weight: 43.8 kg

DRUGS (11)
  1. REFLEX [Suspect]
     Indication: DEPRESSION
     Dosage: DAILY DOSE: 15MG
     Route: 048
     Dates: start: 20110107, end: 20110110
  2. REFLEX [Suspect]
     Dosage: DAILY DOSE: 30MG
     Route: 048
     Dates: start: 20110111, end: 20110127
  3. REFLEX [Suspect]
     Dosage: DAILY DOSE: 45MG
     Route: 048
     Dates: start: 20110128, end: 20110416
  4. ETHYL LOFLAZEPATE [Concomitant]
     Indication: ANXIETY
     Dosage: 1 MG/DAY
     Route: 048
     Dates: start: 20101221, end: 20110411
  5. ZOLPIDEM TARTRATE [Concomitant]
     Indication: INSOMNIA
     Dosage: DAILY DOSE: 5 MG
     Route: 048
     Dates: start: 20110107
  6. WARFARIN POTASSIUM [Concomitant]
     Indication: ATRIAL FIBRILLATION
     Dosage: DAILY DOSE: 1 MG
     Route: 048
  7. FAMOTIDINE [Concomitant]
     Indication: GASTRITIS
     Dosage: DAILY DOSE: 10 MG
     Route: 048
  8. DIGOXIN [Concomitant]
     Indication: ATRIAL FIBRILLATION
     Dosage: DAILY DOSE: 0.125 MG
     Route: 048
  9. DIGOXIN [Concomitant]
     Indication: TACHYCARDIA
  10. VERAPAMIL HYDROCHLORIDE [Concomitant]
     Indication: TACHYARRHYTHMIA
     Dosage: DAILY DOSE: 80MG
     Route: 048
  11. MAGNESIUM OXIDE [Concomitant]
     Indication: CONSTIPATION
     Dosage: DAILY DOSE: 1G
     Route: 048
     Dates: start: 20110118, end: 20110316

REACTIONS (5)
  - Respiratory failure [Fatal]
  - Pleural effusion [Fatal]
  - Cerebral infarction [Recovering/Resolving]
  - Pneumonia [Recovering/Resolving]
  - Delirium [Recovering/Resolving]
